FAERS Safety Report 4787000-7 (Version None)
Quarter: 2005Q4

REPORT INFORMATION
  Report Type: 
  Country: None (occurrence: None)
  Receive Date: 20051004
  Receipt Date: 20050928
  Transmission Date: 20060501
  Serious: Yes (Other)
  Sender: FDA-Public Use
  Company Number: 1005149

PATIENT
  Age: 7 Year
  Sex: Male

DRUGS (2)
  1. BACTROBAN [Suspect]
     Indication: INJURY
     Route: 061
     Dates: start: 20050701, end: 20050701
  2. MERCUROCHROME [Concomitant]
     Indication: INJURY
     Route: 061

REACTIONS (1)
  - DERMATITIS BULLOUS [None]
